FAERS Safety Report 7673044-4 (Version None)
Quarter: 2011Q3

REPORT INFORMATION
  Report Type: 
  Country: None (occurrence: None)
  Receive Date: 20110809
  Receipt Date: 20110729
  Transmission Date: 20111222
  Serious: Yes (Hospitalization)
  Sender: FDA-Public Use
  Company Number: US-RB-025985-11

PATIENT
  Age: 34 Year
  Sex: Male

DRUGS (7)
  1. TRAZODONE HCL [Concomitant]
     Indication: AFFECTIVE DISORDER
     Dosage: DOSING INFORMATION UNKNOWN
     Route: 065
  2. VALIUM [Concomitant]
     Indication: PRODUCT USED FOR UNKNOWN INDICATION
     Dosage: DOSING INFORMATION UNKNOWN
     Route: 065
  3. SUBOXONE [Suspect]
     Indication: DRUG DEPENDENCE
     Dosage: 20 MG TAPERED TO 8 MG DAILY
     Route: 060
     Dates: start: 20070101, end: 20110701
  4. PROZAC [Concomitant]
     Indication: AFFECTIVE DISORDER
     Dosage: DOSING INFORMATION UNKNOWN
     Route: 065
  5. HEROIN [Suspect]
     Indication: PRODUCT USED FOR UNKNOWN INDICATION
     Dosage: UNKNOWN DOSING DETAILS
     Route: 065
  6. ABILIFY [Concomitant]
     Indication: AFFECTIVE DISORDER
     Dosage: DOSING INFORMATION UNKNOWN
     Route: 065
  7. ADDERALL 5 [Concomitant]
     Indication: ATTENTION DEFICIT/HYPERACTIVITY DISORDER
     Dosage: DOSING INFORMATION UNKNOWN
     Route: 065

REACTIONS (5)
  - DRUG WITHDRAWAL SYNDROME [None]
  - DRUG ABUSE [None]
  - CONDITION AGGRAVATED [None]
  - MENTAL DISORDER [None]
  - VOMITING [None]
